FAERS Safety Report 5646404-0 (Version None)
Quarter: 2008Q1

REPORT INFORMATION
  Report Type: 
  Country: None (occurrence: None)
  Receive Date: 20080227
  Receipt Date: 20080211
  Transmission Date: 20080703
  Serious: Yes (Hospitalization, Other)
  Sender: FDA-Public Use
  Company Number: DSA_30926_2007

PATIENT
  Sex: Female

DRUGS (6)
  1. LORAZEPAM [Suspect]
     Dosage: NOT THE PRESCRIBED AMOUNT (25 TO 37.5 MG). ORAL)
     Route: 048
     Dates: start: 20071114, end: 20071114
  2. LORAZEPAM [Suspect]
     Indication: ANXIETY
     Dosage: 2.5 MG QD ORAL
     Route: 048
     Dates: start: 20071001, end: 20071101
  3. LORAZEPAM [Suspect]
     Indication: DEPRESSION
     Dosage: 2.5 MG QD ORAL
     Route: 048
     Dates: start: 20071001, end: 20071101
  4. CIPRALEX /01588501/ [Concomitant]
  5. TETRAHYDROCANNABINOL [Concomitant]
  6. ETHANOL [Concomitant]

REACTIONS (7)
  - CRYING [None]
  - DIZZINESS [None]
  - DYSTHYMIC DISORDER [None]
  - INTENTIONAL OVERDOSE [None]
  - MEMORY IMPAIRMENT [None]
  - SUICIDE ATTEMPT [None]
  - THOUGHT BLOCKING [None]
